FAERS Safety Report 17515770 (Version 1)
Quarter: 2020Q1

REPORT INFORMATION
  Report Type: Spontaneous
  Country: US (occurrence: US)
  Receive Date: 20200227
  Receipt Date: 20200227
  Transmission Date: 20200409
  Serious: Yes (Hospitalization)
  Sender: FDA-Public Use
  Company Number: None

PATIENT
  Age: 17 Year
  Sex: Male

DRUGS (1)
  1. TOBI [Suspect]
     Active Substance: TOBRAMYCIN
     Dosage: ?          OTHER STRENGTH:300MG/5ML;?
     Route: 055

REACTIONS (3)
  - Fatigue [None]
  - Influenza [None]
  - Condition aggravated [None]

NARRATIVE: CASE EVENT DATE: 20200115
